FAERS Safety Report 7651372-6 (Version None)
Quarter: 2011Q3

REPORT INFORMATION
  Report Type: 
  Country: None (occurrence: None)
  Receive Date: 20110802
  Receipt Date: 20110721
  Transmission Date: 20111222
  Serious: Yes (Hospitalization)
  Sender: FDA-Public Use
  Company Number: PHHO2011US12526

PATIENT
  Sex: Female
  Weight: 48 kg

DRUGS (2)
  1. AFINITOR [Suspect]
     Indication: THYROID CANCER
     Dosage: 10 MG, QD
     Route: 048
  2. SOM230 [Suspect]
     Indication: THYROID CANCER
     Dosage: 60 MG, QMO
     Route: 030

REACTIONS (2)
  - DIABETIC KETOACIDOSIS [None]
  - FALL [None]
